FAERS Safety Report 8661004 (Version 7)
Quarter: 2015Q3

REPORT INFORMATION
  Report Type: Spontaneous
  Country: JP (occurrence: None)
  Receive Date: 20120626
  Receipt Date: 20150831
  Transmission Date: 20151125
  Serious: Yes (Hospitalization, Other)
  Sender: FDA-Public Use
  Company Number: 2010JP000243

PATIENT
  Age: 23 Year
  Sex: Female
  Weight: 49 kg

DRUGS (62)
  1. PARIET [Concomitant]
     Active Substance: RABEPRAZOLE SODIUM
  2. LIPIDIL [Concomitant]
     Active Substance: FENOFIBRATE
  3. KAYTWO N [Concomitant]
     Active Substance: MENATETRENONE
  4. ASTOMIN [Concomitant]
     Active Substance: DIMEMORFAN
  5. TANATRIL (IMIDAPRIL HYDROCHLORIDE) [Concomitant]
     Active Substance: IMIDAPRIL HYDROCHLORIDE
  6. CEFZON [Concomitant]
     Active Substance: CEFDINIR
  7. LOXONIN (LOXOPROFEN SODIUM) [Concomitant]
     Active Substance: LOXOPROFEN SODIUM
  8. FLUNASE [Concomitant]
     Active Substance: FLUTICASONE PROPIONATE
  9. RESTAMIN (DIPHENHYDRAMINE) [Concomitant]
  10. MEDROL [Suspect]
     Active Substance: METHYLPREDNISOLONE
     Indication: LUPUS NEPHRITIS
     Route: 048
     Dates: start: 20080229, end: 20130901
  11. WARFARIN (WARFARIN) [Concomitant]
     Active Substance: WARFARIN
  12. LAC-B [Concomitant]
     Active Substance: BIFIDOBACTERIUM SPP.
  13. PRIMPERAN [Concomitant]
     Active Substance: METOCLOPRAMIDE HYDROCHLORIDE
  14. GLUCOSE [Concomitant]
     Active Substance: DEXTROSE
  15. PL [Concomitant]
     Active Substance: ACETAMINOPHEN\CAFFEINE\PROMETHAZINE\SALICYLAMIDE
  16. CRAVIT [Concomitant]
     Active Substance: LEVOFLOXACIN
  17. DALACIN T [Concomitant]
     Active Substance: CLINDAMYCIN PHOSPHATE
  18. PROGRAF [Suspect]
     Active Substance: TACROLIMUS\TACROLIMUS ANHYDROUS
     Indication: LUPUS NEPHRITIS
     Dosage: 3 MG, ONCE DAILY, ORAL?
     Route: 048
     Dates: start: 20070723, end: 20090325
  19. SOLU-MEDROL [Suspect]
     Active Substance: METHYLPREDNISOLONE SODIUM SUCCINATE
     Indication: LUPUS NEPHRITIS
     Dosage: 1 G, ONCE DAILY, UNKNOWN
     Dates: start: 20070723, end: 20070724
  20. EPADEL-S [Concomitant]
     Active Substance: ETHYL ICOSAPENTATE\ICOSAPENT
  21. ALFAROL [Concomitant]
     Active Substance: ALFACALCIDOL
  22. PLETAAL [Concomitant]
     Active Substance: CILOSTAZOL
  23. CONIEL (BENIDIPINE HYDROCHLORIDE) (BENIDIPINE HYDROCHLORIDE) [Concomitant]
     Active Substance: BENIDIPINE HYDROCHLORIDE
  24. NAUZELIN [Concomitant]
     Active Substance: DOMPERIDONE
  25. BISOLVON [Concomitant]
     Active Substance: BROMHEXINE HYDROCHLORIDE
  26. BONOTEO [Concomitant]
     Active Substance: MINODRONIC ACID
  27. CELLCEPT [Concomitant]
     Active Substance: MYCOPHENOLATE MOFETIL\MYCOPHENOLATE MOFETIL HYDROCHLORIDE
  28. LIPITOR [Concomitant]
     Active Substance: ATORVASTATIN CALCIUM
  29. BAKTAR (SULFAMETHOXAZOLE/TRIMETHOPRIM) [Concomitant]
     Active Substance: SULFAMETHOXAZOLE\TRIMETHOPRIM
  30. VEEN D [Concomitant]
     Active Substance: CALCIUM CHLORIDE\DEXTROSE\POTASSIUM CHLORIDE\SODIUM ACETATE\SODIUM CHLORIDE
  31. ZYLORIC (ALLOPURINOL) [Concomitant]
     Active Substance: ALLOPURINOL
  32. ALLELOCK [Concomitant]
     Active Substance: OLOPATADINE HYDROCHLORIDE
  33. BAYASPIRIN (ACETYLSALICYLIC ACID) (ACETYLSALICYLIC ACID) [Concomitant]
     Active Substance: ASPIRIN
  34. PREDNISOLONE. [Suspect]
     Active Substance: PREDNISOLONE
     Indication: LUPUS NEPHRITIS
     Dosage: 35 MG, ONCE DAILY, ORAL
     Route: 048
     Dates: end: 20070802
  35. BREDININ (MIZORIBINE) [Concomitant]
     Active Substance: MIZORIBINE
  36. LASIX [Concomitant]
     Active Substance: FUROSEMIDE
  37. OMEPRAL (OMEPRAZOLE) [Concomitant]
     Active Substance: OMEPRAZOLE
  38. MUCOSTA [Concomitant]
     Active Substance: REBAMIPIDE
  39. VITAMEDIN [Concomitant]
     Active Substance: CYANOCOBALAMIN\PYRIDOXINE HYDROCHLORIDE\THIAMINE
  40. SOLITA-T3 [Concomitant]
     Active Substance: POTASSIUM CHLORIDE\SODIUM CHLORIDE\SODIUM LACTATE
  41. FLOMOX (CEFCAPENE PIVOXIL HYDROCHLORIDE) [Concomitant]
     Active Substance: CEFCAPENE PIVOXIL HYDROCHLORIDE
  42. ZITHROMAC [Concomitant]
     Active Substance: AZITHROMYCIN DIHYDRATE
  43. ZETIA [Concomitant]
     Active Substance: EZETIMIBE
  44. CEFTRIAXONE (CEFTRIAXONE) [Concomitant]
     Active Substance: CEFTRIAXONE
  45. SOLU-MEDROL [Suspect]
     Active Substance: METHYLPREDNISOLONE SODIUM SUCCINATE
     Indication: SYSTEMIC LUPUS ERYTHEMATOSUS
     Dosage: 1 G, ONCE DAILY, UNKNOWN
     Dates: start: 20070723, end: 20070724
  46. PANALDINE [Concomitant]
     Active Substance: TICLOPIDINE HYDROCHLORIDE
  47. JUVELA N [Concomitant]
     Active Substance: TOCOPHERYL NICOTINATE, D-.ALPHA.
  48. NATRIX [Concomitant]
     Active Substance: INDAPAMIDE
  49. MOHRUS L [Concomitant]
     Active Substance: KETOPROFEN
  50. ESPO (EPOETIN ALFA) [Concomitant]
     Active Substance: ERYTHROPOIETIN
  51. EBASTEL D (EBASTINE, PSEUDOEPHEDRINE HYDORCHLORIDE) ORODISPERSIBLE [Concomitant]
  52. BUSCOPAN (HYOSCINE BUTYLBROMIDE) (HYOSCINE BUTYLBROMIDE) [Concomitant]
     Active Substance: BUTYLSCOPOLAMINE
  53. NIPOLAZIN (MEQUITAZINE) [Concomitant]
     Active Substance: MEQUITAZINE
  54. PANALDINE [Concomitant]
     Active Substance: TICLOPIDINE HYDROCHLORIDE
  55. BROCIN (PRUNUS SPP. BARK) [Concomitant]
     Active Substance: HERBALS
  56. DECADRON [Suspect]
     Active Substance: DEXAMETHASONE
     Indication: LUPUS NEPHRITIS
     Dosage: 5.5 MG, ONCE DAILY, ORAL
     Route: 048
     Dates: start: 20070731, end: 20080225
  57. BEZATOL [Concomitant]
     Active Substance: BEZAFIBRATE
  58. TAKEPRON (LANSOPRAZOLE) [Concomitant]
     Active Substance: LANSOPRAZOLE
  59. DIOVAN [Concomitant]
     Active Substance: VALSARTAN
  60. SOLITA-T1 (GLOUSE, SODIUM CHLORIDE, SODIUM LACTATE) [Concomitant]
     Active Substance: DEXTROSE\SODIUM CHLORIDE\SODIUM LACTATE
  61. COCARL [Concomitant]
     Active Substance: ACETAMINOPHEN
  62. MEROPEN (MEROPENEM) [Concomitant]
     Active Substance: MEROPENEM

REACTIONS (24)
  - Systemic lupus erythematosus [None]
  - Osteoporosis [None]
  - Upper respiratory tract inflammation [None]
  - Myalgia [None]
  - Appendicitis [None]
  - Chest pain [None]
  - Dehydration [None]
  - Pleurisy [None]
  - Nasopharyngitis [None]
  - Dyslipidaemia [None]
  - Condition aggravated [None]
  - Musculoskeletal pain [None]
  - Back pain [None]
  - Diarrhoea [None]
  - Lupus nephritis [None]
  - Pneumonia [None]
  - Pharyngitis [None]
  - Rhinitis allergic [None]
  - Cystitis [None]
  - Gastroenteritis [None]
  - Acne [None]
  - Hyperlipidaemia [None]
  - Nephrogenic anaemia [None]
  - Pruritus [None]

NARRATIVE: CASE EVENT DATE: 20080201
